FAERS Safety Report 8845357 (Version 1)
Quarter: 2012Q4

REPORT INFORMATION
  Report Type: 
  Country: SG (occurrence: SG)
  Receive Date: 20121017
  Receipt Date: 20121017
  Transmission Date: 20130627
  Serious: Yes (Other)
  Sender: FDA-Public Use
  Company Number: SG-RANBAXY-2012US-60947

PATIENT
  Sex: Male

DRUGS (1)
  1. CIPROFLOXACIN [Suspect]
     Indication: OSTEOMYELITIS
     Dosage: UNK
     Route: 065

REACTIONS (5)
  - Leukocytoclastic vasculitis [Unknown]
  - Pyrexia [Unknown]
  - Arthritis [Unknown]
  - Renal impairment [Unknown]
  - Cryoglobulinaemia [Unknown]
